FAERS Safety Report 4451708-3 (Version None)
Quarter: 2004Q3

REPORT INFORMATION
  Report Type: 
  Country: None (occurrence: None)
  Receive Date: 20040916
  Receipt Date: 20040713
  Transmission Date: 20050211
  Serious: Yes (Life-Threatening, Hospitalization, Other)
  Sender: FDA-Public Use
  Company Number: US-MERCK-0407USA01168

PATIENT
  Age: 59 Year
  Sex: Female

DRUGS (5)
  1. TYLENOL [Concomitant]
     Route: 065
  2. ATENOLOL [Concomitant]
     Route: 065
  3. CELEXA [Concomitant]
     Route: 065
  4. HYDROCHLOROTHIAZIDE AND TRIAMTERENE [Concomitant]
     Route: 065
  5. VIOXX [Suspect]
     Indication: POST PROCEDURAL PAIN
     Route: 048
     Dates: start: 20040101, end: 20040101

REACTIONS (3)
  - ARTHROPATHY [None]
  - GASTRIC ULCER PERFORATION [None]
  - GASTROINTESTINAL HAEMORRHAGE [None]
